FAERS Safety Report 9255499 (Version 1)
Quarter: 2013Q2

REPORT INFORMATION
  Report Type: Spontaneous
  Country: ES (occurrence: None)
  Receive Date: 20130418
  Receipt Date: 20130418
  Transmission Date: 20140414
  Serious: Yes (Hospitalization)
  Sender: FDA-Public Use
  Company Number: SP06573

PATIENT
  Age: 65 Year
  Sex: Female

DRUGS (1)
  1. MOVIPREP (SOLUTION) [Suspect]
     Indication: BOWEL PREPARATION
     Route: 048
     Dates: start: 2013

REACTIONS (3)
  - Loss of consciousness [None]
  - Hyponatraemia [None]
  - Coma [None]
